FAERS Safety Report 6549610-6 (Version None)
Quarter: 2010Q1

REPORT INFORMATION
  Report Type: 
  Country: None (occurrence: None)
  Receive Date: 20100125
  Receipt Date: 20100115
  Transmission Date: 20100710
  Serious: Yes (Other)
  Sender: FDA-Public Use
  Company Number: CH-ROCHE-679926

PATIENT
  Age: 54 Year
  Sex: Female

DRUGS (8)
  1. BEVACIZUMAB [Suspect]
     Route: 042
     Dates: start: 20090723, end: 20090930
  2. ZOMETA [Suspect]
     Indication: DRUG USE FOR UNKNOWN INDICATION
     Route: 065
  3. PACLITAXEL [Concomitant]
     Dosage: CYCLE 1
     Dates: start: 20090723
  4. PACLITAXEL [Concomitant]
     Dosage: CYCLE 2, D1
     Dates: start: 20090819
  5. PACLITAXEL [Concomitant]
     Dosage: CYCLE 2, D8; DOSE DECREASED
  6. PACLITAXEL [Concomitant]
     Dosage: CYCLE 2, D15; DOSE DECREASED
     Dates: end: 20090930
  7. CALCIMAGON-D3 [Concomitant]
     Dosage: DOSE: 4000
     Route: 048
  8. VI-DE 3 [Concomitant]
     Route: 048

REACTIONS (3)
  - MALIGNANT NEOPLASM PROGRESSION [None]
  - POLYNEUROPATHY [None]
  - TOOTH ABSCESS [None]
